FAERS Safety Report 14055279 (Version 1)
Quarter: 2017Q4

REPORT INFORMATION
  Report Type: Spontaneous
  Country: US (occurrence: None)
  Receive Date: 20171006
  Receipt Date: 20171006
  Transmission Date: 20180321
  Serious: No
  Sender: FDA-Public Use
  Company Number: None

PATIENT
  Sex: Female

DRUGS (2)
  1. BEVAZCIZUMAB (RHUMAB VEGF) [Suspect]
     Active Substance: BEVACIZUMAB
  2. YAZMIN (GENERIC VERSION) [Suspect]
     Active Substance: DROSPIRENONE\ETHINYL ESTRADIOL

REACTIONS (3)
  - Incorrect product formulation administered [None]
  - Product substitution issue [None]
  - Drug dispensing error [None]

NARRATIVE: CASE EVENT DATE: 2017
